FAERS Safety Report 9559699 (Version 1)
Quarter: 2013Q3

REPORT INFORMATION
  Report Type: Spontaneous
  Country: US (occurrence: None)
  Receive Date: 20130906
  Receipt Date: 20130906
  Transmission Date: 20140515
  Serious: Yes (Hospitalization)
  Sender: FDA-Public Use
  Company Number: 163-POMAL-13080777

PATIENT
  Age: 62 Year
  Sex: Female

DRUGS (8)
  1. POMALYST (POMALIDOMIDE) (CAPSULES) [Suspect]
     Indication: PLASMA CELL MYELOMA
     Dosage: 4 MG, 21 IN 21 D, PO
     Route: 048
     Dates: start: 20130523
  2. ATENOLOL (ATENOLOL) [Concomitant]
  3. CALCIUM (CALCIUM) [Concomitant]
  4. COUMADIN (WARFARIN SODIUM) [Concomitant]
  5. FERROUS SULFATE (FERROUS SULFATE) [Concomitant]
  6. MORPHINE SULFATE (MORPHINE SULFATE) [Concomitant]
  7. OMEPRAZOLE (OMEPRAZOLE) [Concomitant]
  8. POTASSIUM (POTASSIUM) [Concomitant]

REACTIONS (2)
  - Nausea [None]
  - Decreased appetite [None]
